FAERS Safety Report 22139223 (Version 3)
Quarter: 2023Q2

REPORT INFORMATION
  Report Type: Report from Study
  Country: US (occurrence: US)
  Receive Date: 20230327
  Receipt Date: 20230607
  Transmission Date: 20230721
  Serious: Yes (Hospitalization, Other)
  Sender: FDA-Public Use
  Company Number: US-ABBVIE-4705299

PATIENT
  Age: 64 Year
  Sex: Male

DRUGS (2)
  1. HUMIRA [Suspect]
     Active Substance: ADALIMUMAB
     Indication: Rheumatoid arthritis
     Dosage: CITRATE FREE
     Route: 058
     Dates: start: 20180101
  2. HUMIRA [Suspect]
     Active Substance: ADALIMUMAB
     Indication: Ankylosing spondylitis

REACTIONS (7)
  - Lyme disease [Unknown]
  - Acute myeloid leukaemia [Unknown]
  - Arthritis [Unknown]
  - Dementia [Unknown]
  - Hepatitis B virus test positive [Unknown]
  - Hepatitis C virus test positive [Unknown]
  - Joint effusion [Unknown]

NARRATIVE: CASE EVENT DATE: 20180101
